FAERS Safety Report 4544765-7 (Version None)
Quarter: 2004Q4

REPORT INFORMATION
  Report Type: 
  Country: None (occurrence: None)
  Receive Date: 20041230
  Receipt Date: 20041217
  Transmission Date: 20050328
  Serious: Yes (Hospitalization, Other)
  Sender: FDA-Public Use
  Company Number: 2004116378

PATIENT
  Age: 53 Year
  Sex: Male
  Weight: 92.9874 kg

DRUGS (4)
  1. CELEBREX [Suspect]
     Indication: PAIN IN EXTREMITY
     Dosage: 200 MG (200 MG, 1 IN 1 D)
     Dates: start: 19890101
  2. VICODIN [Concomitant]
  3. MULTIVITAMIN [Concomitant]
  4. HERBAL PREPARATION (HERBAL PREPARATION) [Concomitant]

REACTIONS (5)
  - AORTIC VALVE DISEASE [None]
  - CARDIAC MURMUR [None]
  - DYSPNOEA [None]
  - EXERCISE LACK OF [None]
  - PAIN IN EXTREMITY [None]
